FAERS Safety Report 7355156-8 (Version None)
Quarter: 2011Q1

REPORT INFORMATION
  Report Type: 
  Country: None (occurrence: None)
  Receive Date: 20110307
  Receipt Date: 20100315
  Transmission Date: 20110831
  Serious: No
  Sender: FDA-Public Use
  Company Number: AEUSA201000078

PATIENT
  Age: 48 Year
  Sex: Male
  Weight: 76.2043 kg

DRUGS (5)
  1. PROLASTIN [Suspect]
     Indication: ALPHA-1 ANTI-TRYPSIN DEFICIENCY
     Dosage: 4000 MG, QW, IV
     Route: 042
  2. PROVENTIL [Concomitant]
  3. ADVAIR DISKUS 100/50 [Concomitant]
  4. SPIRIVA [Concomitant]
  5. KLONOPIN [Concomitant]

REACTIONS (3)
  - BURNING SENSATION [None]
  - RASH [None]
  - ROSACEA [None]
